FAERS Safety Report 24252815 (Version 1)
Quarter: 2024Q3

REPORT INFORMATION
  Report Type: Spontaneous
  Country: CN (occurrence: CN)
  Receive Date: 20240827
  Receipt Date: 20240827
  Transmission Date: 20241017
  Serious: Yes (Other)
  Sender: SANOFI AVENTIS
  Company Number: CN-SA-2024SA247325

PATIENT
  Age: 76 Year
  Sex: Male

DRUGS (18)
  1. OXALIPLATIN [Suspect]
     Active Substance: OXALIPLATIN
     Indication: Blastic plasmacytoid dendritic cell neoplasia
     Dosage: 100 MG, D1
     Dates: start: 20231120
  2. OXALIPLATIN [Suspect]
     Active Substance: OXALIPLATIN
     Indication: Diffuse large B-cell lymphoma stage IV
     Dosage: 100 MG, D1
     Dates: start: 20231205
  3. PREDNISOLONE [Suspect]
     Active Substance: PREDNISOLONE
     Indication: Diffuse large B-cell lymphoma stage IV
     Dosage: UNK UNK, QCY
     Dates: start: 20211217
  4. PREDNISONE [Suspect]
     Active Substance: PREDNISONE
     Dosage: 15 MG, BID
     Route: 048
     Dates: start: 20231114
  5. GEMCITABINE [Suspect]
     Active Substance: GEMCITABINE
     Indication: Blastic plasmacytoid dendritic cell neoplasia
     Dosage: 1.4 G, D1
     Dates: start: 20231120, end: 2023
  6. GEMCITABINE [Suspect]
     Active Substance: GEMCITABINE
     Indication: Diffuse large B-cell lymphoma stage IV
     Dosage: 1.4 G, D1
     Dates: start: 20231205
  7. AZACITIDINE [Suspect]
     Active Substance: AZACITIDINE
     Indication: Blastic plasmacytoid dendritic cell neoplasia
     Dosage: 100 MG, QD (HD, D1-D7 )
     Dates: start: 20230925, end: 2023
  8. AZACITIDINE [Suspect]
     Active Substance: AZACITIDINE
     Indication: Diffuse large B-cell lymphoma stage IV
     Dosage: 100 MG, QD (HD, D1 - D8)
     Dates: start: 20231023, end: 2023
  9. AZACITIDINE [Suspect]
     Active Substance: AZACITIDINE
     Dosage: 100 MG, QD (D2 - D9)
     Dates: start: 20231120, end: 2023
  10. RITUXIMAB [Suspect]
     Active Substance: RITUXIMAB
     Indication: Diffuse large B-cell lymphoma stage IV
     Dosage: UNK UNK, QCY
     Dates: start: 20211217
  11. CYCLOPHOSPHAMIDE [Suspect]
     Active Substance: CYCLOPHOSPHAMIDE
     Indication: Diffuse large B-cell lymphoma stage IV
     Dosage: UNK UNK, QCY
     Dates: start: 20211217
  12. DOXORUBICIN [Suspect]
     Active Substance: DOXORUBICIN
     Indication: Diffuse large B-cell lymphoma stage IV
     Dosage: UNK UNK, QCY
     Dates: start: 20211217
  13. VINCRISTINE [Suspect]
     Active Substance: VINCRISTINE
     Indication: Diffuse large B-cell lymphoma stage IV
     Dosage: UNK UNK, QCY
     Dates: start: 20211217
  14. LENALIDOMIDE [Suspect]
     Active Substance: LENALIDOMIDE
     Indication: Diffuse large B-cell lymphoma stage IV
     Dosage: UNK UNK, QCY
     Route: 048
     Dates: start: 20220316, end: 20220822
  15. LENALIDOMIDE [Suspect]
     Active Substance: LENALIDOMIDE
     Dosage: UNK, SYMPTOMATIC PALLIATIVE TREATMENT (CAPSULES)
     Route: 048
     Dates: start: 202210, end: 202307
  16. VENCLEXTA [Suspect]
     Active Substance: VENETOCLAX
     Indication: Blastic plasmacytoid dendritic cell neoplasia
     Dosage: 100 MG, QD (D1)
     Dates: start: 20230925, end: 2023
  17. VENCLEXTA [Suspect]
     Active Substance: VENETOCLAX
     Indication: Diffuse large B-cell lymphoma stage IV
     Dosage: 200 MG, QD (D2-D28)
     Dates: start: 20230925, end: 2023
  18. VENCLEXTA [Suspect]
     Active Substance: VENETOCLAX
     Dosage: 200 MG, QD (D1-D21)
     Dates: start: 20231023, end: 2023

REACTIONS (5)
  - Myelosuppression [Recovering/Resolving]
  - Disease recurrence [Recovering/Resolving]
  - Interstitial lung disease [Recovering/Resolving]
  - Granulocytopenia [Unknown]
  - Pyrexia [Unknown]

NARRATIVE: CASE EVENT DATE: 20210101
